FAERS Safety Report 8065271-1 (Version None)
Quarter: 2011Q4

REPORT INFORMATION
  Report Type: 
  Country: None (occurrence: None)
  Receive Date: 20111221
  Receipt Date: 20110426
  Transmission Date: 20120403
  Serious: Yes (Other)
  Sender: FDA-Public Use
  Company Number: PHHY2011US35756

PATIENT
  Sex: Male
  Weight: 67.1 kg

DRUGS (1)
  1. EXJADE [Suspect]
     Indication: NEOPLASM
     Dosage: 1000 MG, DAILY, ORAL
     Route: 048
     Dates: start: 20101014

REACTIONS (1)
  - DEAFNESS [None]
